FAERS Safety Report 11598426 (Version 4)
Quarter: 2016Q2

REPORT INFORMATION
  Report Type: Report from Study
  Country: DE (occurrence: DE)
  Receive Date: 20151006
  Receipt Date: 20160525
  Transmission Date: 20160815
  Serious: Yes (Death, Hospitalization)
  Sender: FDA-Public Use
  Company Number: DE-INCYTE CORPORATION-2015IN000561

PATIENT
  Sex: Female
  Weight: 43 kg

DRUGS (3)
  1. INCB018424 [Suspect]
     Active Substance: RUXOLITINIB
     Dosage: 2 DF OF 5 MG PER DAY
     Route: 048
     Dates: start: 201408
  2. INCB018424 [Suspect]
     Active Substance: RUXOLITINIB
     Indication: PRIMARY MYELOFIBROSIS
     Dosage: 7.5 MG, QD
     Route: 048
     Dates: start: 20140404
  3. INCB018424 [Suspect]
     Active Substance: RUXOLITINIB
     Dosage: 4 DF OF 5 MG PER DAY
     Route: 048
     Dates: start: 20140507, end: 201407

REACTIONS (5)
  - Pyoderma gangrenosum [Recovered/Resolved]
  - Cholecystitis [Recovered/Resolved]
  - Death [Fatal]
  - Klebsiella infection [Recovered/Resolved]
  - Sepsis [Recovered/Resolved]

NARRATIVE: CASE EVENT DATE: 201407
